FAERS Safety Report 5697213-8 (Version None)
Quarter: 2008Q2

REPORT INFORMATION
  Report Type: 
  Country: None (occurrence: None)
  Receive Date: 20080408
  Receipt Date: 20070709
  Transmission Date: 20081010
  Serious: No
  Sender: FDA-Public Use
  Company Number: US-BAYER-US-2007-025416

PATIENT
  Age: 34 Year
  Sex: Female
  Weight: 101 kg

DRUGS (3)
  1. YASMIN [Suspect]
     Indication: ORAL CONTRACEPTION
     Route: 048
     Dates: start: 20070501
  2. MULTIVIT [Concomitant]
  3. ZANTAC [Concomitant]

REACTIONS (2)
  - MENORRHAGIA [None]
  - VAGINAL DISCHARGE [None]
